FAERS Safety Report 6208109-7 (Version None)
Quarter: 2009Q2

REPORT INFORMATION
  Report Type: 
  Country: None (occurrence: None)
  Receive Date: 20090529
  Receipt Date: 20090303
  Transmission Date: 20091009
  Serious: No
  Sender: FDA-Public Use
  Company Number: A0771345A

PATIENT

DRUGS (2)
  1. RETROVIR [Suspect]
     Indication: ANTIVIRAL PROPHYLAXIS
  2. CRIXIVAN [Concomitant]

REACTIONS (2)
  - FATIGUE [None]
  - NAUSEA [None]
